FAERS Safety Report 6828187-1 (Version None)
Quarter: 2010Q3

REPORT INFORMATION
  Report Type: 
  Country: None (occurrence: None)
  Receive Date: 20100709
  Receipt Date: 20100629
  Transmission Date: 20110219
  Serious: Yes (Hospitalization, Other)
  Sender: FDA-Public Use
  Company Number: US-ABBOTT-10P-163-0654808-00

PATIENT
  Age: 51 Year
  Sex: Female

DRUGS (2)
  1. HUMIRA [Suspect]
     Indication: RHEUMATOID ARTHRITIS
     Route: 058
     Dates: start: 20070101
  2. OXYCODONE HCL AND ACETAMINOPHEN [Concomitant]
     Indication: RHEUMATOID ARTHRITIS

REACTIONS (10)
  - ABDOMINAL PAIN [None]
  - AGEUSIA [None]
  - ANOSMIA [None]
  - BLINDNESS UNILATERAL [None]
  - CONVULSION [None]
  - FALL [None]
  - MEMORY IMPAIRMENT [None]
  - SKIN ULCER [None]
  - SKULL FRACTURE [None]
  - TRAUMATIC BRAIN INJURY [None]
